FAERS Safety Report 21425749 (Version 1)
Quarter: 2022Q4

REPORT INFORMATION
  Report Type: Report from Study
  Country: CA (occurrence: CA)
  Receive Date: 20221008
  Receipt Date: 20221008
  Transmission Date: 20230112
  Serious: Yes (Other)
  Sender: FDA-Public Use
  Company Number: CA-NOVARTISPH-NVSC2022CA052391

PATIENT
  Age: 70 Year
  Sex: Female

DRUGS (3)
  1. ANASTROZOLE [Suspect]
     Active Substance: ANASTROZOLE
     Indication: Breast cancer metastatic
     Dosage: UNK
     Route: 048
  2. KISQALI [Suspect]
     Active Substance: RIBOCICLIB
     Indication: Breast cancer metastatic
     Dosage: 600 MG, OTHER, ONCE DAILY FOR DAYS 1-21 OF 28-DAY CYCLE, FOLLOWED BY 7 DAYS OF TREATMENT
     Route: 048
     Dates: start: 20220318, end: 202208
  3. KISQALI [Suspect]
     Active Substance: RIBOCICLIB
     Dosage: 400 MG, OTHER, ONCE DAILY FOR DAYS 1-21 OF 28-DAY CYCLE, FOLLOWED BY 7 DAYS OF TREATMENT
     Route: 048
     Dates: start: 202208

REACTIONS (4)
  - Breast cancer metastatic [Unknown]
  - Malignant neoplasm progression [Unknown]
  - Neutropenia [Unknown]
  - COVID-19 [Unknown]

NARRATIVE: CASE EVENT DATE: 20220601
